FAERS Safety Report 6495904-2 (Version None)
Quarter: 2009Q4

REPORT INFORMATION
  Report Type: 
  Country: None (occurrence: None)
  Receive Date: 20091214
  Receipt Date: 20090826
  Transmission Date: 20100525
  Serious: No
  Sender: FDA-Public Use
  Company Number: US-BRISTOL-MYERS SQUIBB COMPANY-14755904

PATIENT
  Age: 32 Year
  Sex: Female
  Weight: 73 kg

DRUGS (4)
  1. ABILIFY [Suspect]
     Indication: BIPOLAR DISORDER
     Dosage: INITIALLY 5MG THEN DOSE INCREASED TO 15MG AND AGAIN DECREASED TO 10MG;DURATION 1.5YEARS
  2. LAMICTAL [Concomitant]
  3. TOPAMAX [Concomitant]
  4. NEXIUM [Concomitant]

REACTIONS (1)
  - DYSTONIA [None]
